FAERS Safety Report 7435087-5 (Version None)
Quarter: 2011Q2

REPORT INFORMATION
  Report Type: 
  Country: None (occurrence: None)
  Receive Date: 20110425
  Receipt Date: 20110413
  Transmission Date: 20111010
  Serious: Yes (Other)
  Sender: FDA-Public Use
  Company Number: PHHY2011US12937

PATIENT
  Sex: Female
  Weight: 127 kg

DRUGS (1)
  1. EXJADE [Suspect]
     Indication: IRON METABOLISM DISORDER
     Dosage: 500 MG, QD
     Route: 048
     Dates: start: 20110208

REACTIONS (4)
  - HEADACHE [None]
  - FATIGUE [None]
  - ANXIETY [None]
  - LIVER DISORDER [None]
